FAERS Safety Report 4421937-3 (Version None)
Quarter: 2004Q3

REPORT INFORMATION
  Report Type: 
  Country: None (occurrence: None)
  Receive Date: 20040804
  Receipt Date: 20040723
  Transmission Date: 20050211
  Serious: Yes (Hospitalization)
  Sender: FDA-Public Use
  Company Number: 2004SE03169

PATIENT
  Age: 54 Year
  Sex: Female
  Weight: 64 kg

DRUGS (7)
  1. BLOPRESS [Suspect]
     Indication: HYPERTENSION
     Dosage: 4 MG QD PO
     Route: 048
     Dates: start: 20040313, end: 20040525
  2. LIPANTIL [Suspect]
     Indication: HYPERLIPIDAEMIA
     Dosage: 150 MG DAILY PO
     Route: 048
     Dates: start: 20040414, end: 20040525
  3. MEDET [Suspect]
     Indication: DIABETES MELLITUS
     Dosage: 500 MG DAILY PO
     Route: 048
     Dates: start: 20040414, end: 20040525
  4. GARLIC + CAPSAICIN 500 [Suspect]
     Indication: OBESITY
     Dosage: 9 DF DAILY PO
     Route: 048
     Dates: start: 20040517, end: 20040520
  5. INSULIN HUMAN [Concomitant]
  6. INSULIN ASPART [Concomitant]
  7. CEFCAPENE PIVOXIL HYDROCHLORIDE [Concomitant]

REACTIONS (12)
  - ALANINE AMINOTRANSFERASE INCREASED [None]
  - ASPARTATE AMINOTRANSFERASE INCREASED [None]
  - CHOLESTASIS [None]
  - FEELING ABNORMAL [None]
  - HEPATIC FUNCTION ABNORMAL [None]
  - HYPERLIPIDAEMIA [None]
  - JAUNDICE [None]
  - LIVER DISORDER [None]
  - LYMPHOCYTE STIMULATION TEST POSITIVE [None]
  - MALAISE [None]
  - PRURITUS GENERALISED [None]
  - TENDON OPERATION [None]
